FAERS Safety Report 9856819 (Version 1)
Quarter: 2014Q1

REPORT INFORMATION
  Report Type: Spontaneous
  Country: US (occurrence: None)
  Receive Date: 20140128
  Receipt Date: 20140128
  Transmission Date: 20141002
  Serious: Yes (Other)
  Sender: FDA-Public Use
  Company Number: 2014SA009112

PATIENT
  Sex: Female

DRUGS (1)
  1. GOLD BOND POWDER SPRAY FRESH [Suspect]

REACTIONS (2)
  - Chemical injury [None]
  - Application site exfoliation [None]
